FAERS Safety Report 20053754 (Version 1)
Quarter: 2021Q4

REPORT INFORMATION
  Report Type: Spontaneous
  Country: US (occurrence: US)
  Receive Date: 20211110
  Receipt Date: 20211110
  Transmission Date: 20220304
  Serious: No
  Sender: FDA-Public Use
  Company Number: US-PERRIGO-20US016707

PATIENT
  Sex: Female
  Weight: 56.508 kg

DRUGS (3)
  1. FAMOTIDINE [Suspect]
     Active Substance: FAMOTIDINE
     Indication: Gastrooesophageal reflux disease
     Dosage: 20 MG, BID
     Route: 048
     Dates: start: 2020, end: 2020
  2. FAMOTIDINE [Suspect]
     Active Substance: FAMOTIDINE
     Dosage: 40 MG, BID
     Route: 048
     Dates: start: 2020, end: 2020
  3. FAMOTIDINE [Suspect]
     Active Substance: FAMOTIDINE
     Dosage: 20 MG EVERY MORNING; 40 MG NIGHTLY
     Route: 048
     Dates: start: 2020

REACTIONS (5)
  - Weight decreased [Not Recovered/Not Resolved]
  - Therapeutic response unexpected [Recovered/Resolved]
  - Therapeutic product effect decreased [Unknown]
  - Overdose [Not Recovered/Not Resolved]
  - Incorrect product administration duration [Not Recovered/Not Resolved]

NARRATIVE: CASE EVENT DATE: 20200101
